FAERS Safety Report 6960774-2 (Version None)
Quarter: 2010Q3

REPORT INFORMATION
  Report Type: 
  Country: None (occurrence: None)
  Receive Date: 20100901
  Receipt Date: 20100827
  Transmission Date: 20110219
  Serious: Yes (Death, Hospitalization)
  Sender: FDA-Public Use
  Company Number: BR-ROCHE-716722

PATIENT
  Sex: Female
  Weight: 60 kg

DRUGS (11)
  1. RIVOTRIL [Suspect]
     Indication: DEPRESSION
     Dosage: 10-15 DROP AT NIGHT,2-5 DROPS IN AFTERNOON
     Route: 065
  2. PROLOPA [Suspect]
     Indication: PRODUCT USED FOR UNKNOWN INDICATION
     Dosage: 200MG/50MG TABLET;STARTED BEFORE APRIL 2010
     Route: 065
     Dates: end: 20100710
  3. PROLOPA HBS [Suspect]
     Indication: PRODUCT USED FOR UNKNOWN INDICATION
     Dosage: 100MG/25MG CAPSULE
     Route: 065
     Dates: start: 20100711
  4. FENERGAN [Suspect]
     Indication: ANTIALLERGIC THERAPY
     Dosage: TAKEN AT NIGHT
     Route: 065
     Dates: end: 20100706
  5. FENERGAN [Suspect]
     Route: 065
     Dates: start: 20100715
  6. FRONTAL [Suspect]
     Indication: ANXIETY
     Dosage: TAKEN AT NIGHT
     Route: 065
     Dates: end: 20100706
  7. FRONTAL [Suspect]
     Route: 065
     Dates: start: 20100715
  8. AKINETON [Suspect]
     Indication: PARKINSON'S DISEASE
     Route: 065
     Dates: end: 20100706
  9. AKINETON [Suspect]
     Route: 065
     Dates: start: 20100715
  10. PURAN T4 [Concomitant]
  11. ATACAND [Concomitant]
     Indication: HYPERTENSION

REACTIONS (9)
  - APHTHOUS STOMATITIS [None]
  - DEPRESSION [None]
  - DIZZINESS [None]
  - FEELING HOT [None]
  - GLOSSODYNIA [None]
  - HYPERSENSITIVITY [None]
  - MEDICATION ERROR [None]
  - MOUTH INJURY [None]
  - PNEUMONIA [None]
